FAERS Safety Report 13424243 (Version 1)
Quarter: 2017Q2

REPORT INFORMATION
  Report Type: Report from Study
  Country: US (occurrence: US)
  Receive Date: 20170410
  Receipt Date: 20170410
  Transmission Date: 20170830
  Serious: No
  Sender: FDA-Public Use
  Company Number: US-AMGEN-USASL2017051937

PATIENT
  Age: 54 Year
  Sex: Female

DRUGS (2)
  1. ENBREL [Suspect]
     Active Substance: ETANERCEPT
     Indication: STILL^S DISEASE
  2. ENBREL [Suspect]
     Active Substance: ETANERCEPT
     Indication: AUTOIMMUNE DISORDER
     Dosage: UNK
     Route: 065

REACTIONS (1)
  - Off label use [Unknown]
